FAERS Safety Report 13935659 (Version 1)
Quarter: 2017Q3

REPORT INFORMATION
  Report Type: Spontaneous
  Country: JP (occurrence: JP)
  Receive Date: 20170905
  Receipt Date: 20170905
  Transmission Date: 20171127
  Serious: Yes (Hospitalization)
  Sender: FDA-Public Use
  Company Number: JP-SA-2017SA161873

PATIENT
  Age: 70 Year
  Sex: Female
  Weight: 54 kg

DRUGS (1)
  1. FABRAZYME [Suspect]
     Active Substance: AGALSIDASE BETA
     Indication: FABRY^S DISEASE
     Dosage: 1VIAL/TIME/3VIAL/TIME
     Route: 041
     Dates: start: 201405, end: 20170803

REACTIONS (3)
  - Cardiac failure [Unknown]
  - Gastric ulcer [Unknown]
  - Feeding disorder [Unknown]

NARRATIVE: CASE EVENT DATE: 201708
